FAERS Safety Report 10184427 (Version 2)
Quarter: 2014Q2

REPORT INFORMATION
  Report Type: Spontaneous
  Country: ES (occurrence: ES)
  Receive Date: 20140521
  Receipt Date: 20140521
  Transmission Date: 20141212
  Serious: Yes (Other)
  Sender: FDA-Public Use
  Company Number: ES-AMGEN-ESPSP2014031694

PATIENT
  Sex: Female

DRUGS (3)
  1. PROLIA [Suspect]
     Indication: PRODUCT USED FOR UNKNOWN INDICATION
     Dosage: UNK
     Route: 065
     Dates: start: 20140409
  2. CONDROSAN [Concomitant]
     Route: 065
  3. CALCIUM [Concomitant]

REACTIONS (5)
  - Exposed bone in jaw [Unknown]
  - Purulent discharge [Unknown]
  - Gingival pain [Unknown]
  - Tooth loss [Unknown]
  - Gingival inflammation [Unknown]
